FAERS Safety Report 22023171 (Version 4)
Quarter: 2023Q2

REPORT INFORMATION
  Report Type: Report from Study
  Country: US (occurrence: US)
  Receive Date: 20230223
  Receipt Date: 20230628
  Transmission Date: 20230722
  Serious: Yes (Other)
  Sender: FDA-Public Use
  Company Number: US-ABBVIE-4315205

PATIENT
  Sex: Female

DRUGS (3)
  1. RINVOQ [Suspect]
     Active Substance: UPADACITINIB
     Indication: Colitis ulcerative
     Dosage: LAST ADMIN DATE: 2023, FORM STRENGTH: 15 MILLIGRAM
     Route: 048
     Dates: start: 20230405
  2. RINVOQ [Suspect]
     Active Substance: UPADACITINIB
     Indication: Colitis ulcerative
     Dosage: LAST ADMIN DATE: 2023, FORM STRENGTH: 45 MILLIGRAM
     Route: 048
     Dates: start: 20230207
  3. RINVOQ [Suspect]
     Active Substance: UPADACITINIB
     Indication: Colitis ulcerative
     Dosage: FIRST AND LAST ADMIN DATE: 2023, FORM STRENGTH: 30 MILLIGRAM, DURATION: WENT UP TO 30 MILLIGRAM
     Route: 048

REACTIONS (12)
  - Neoplasm malignant [Recovering/Resolving]
  - Colitis ulcerative [Not Recovered/Not Resolved]
  - Blood cholesterol increased [Unknown]
  - Muscle spasms [Not Recovered/Not Resolved]
  - Eye swelling [Unknown]
  - Follicular disorder [Unknown]
  - Weight increased [Unknown]
  - Constipation [Not Recovered/Not Resolved]
  - Asthenia [Not Recovered/Not Resolved]
  - Intervertebral disc protrusion [Not Recovered/Not Resolved]
  - Pain of skin [Unknown]
  - Hot flush [Unknown]

NARRATIVE: CASE EVENT DATE: 20230101
